FAERS Safety Report 8011248 (Version 2)
Quarter: 2013Q2

REPORT INFORMATION
  Report Type: Report from Study
  Country: US (occurrence: US)
  Receive Date: 20110627
  Receipt Date: 20130513
  Transmission Date: 20140414
  Serious: Yes (Congenital Anomaly, Other)
  Sender: FDA-Public Use
  Company Number: US-UCBSA-011511

PATIENT
  Age: 9 Day
  Sex: Female
  Weight: 4 kg

DRUGS (9)
  1. KEPPRA [Suspect]
     Route: 064
  2. KEPPRA [Suspect]
     Route: 064
     Dates: start: 20090504
  3. KEPPRA [Suspect]
     Route: 064
  4. FLU SHOT [Concomitant]
     Dosage: ONCE
     Route: 064
     Dates: start: 20091006, end: 20091006
  5. PRENATAL VITS [Concomitant]
     Route: 064
  6. ALBUTEROL [Concomitant]
     Dosage: PARENT ROUTE: INHALER
     Route: 064
  7. VITAMIN D [Concomitant]
     Route: 064
  8. CELEXA [Concomitant]
     Route: 064
     Dates: end: 200908
  9. LEVOTHYROXINE [Concomitant]
     Route: 064

REACTIONS (6)
  - Ventricular septal defect [Recovered/Resolved]
  - Febrile convulsion [Unknown]
  - Candida infection [Unknown]
  - Foetal exposure during pregnancy [Recovered/Resolved]
  - Genital labial adhesions [Unknown]
  - Haemangioma [Unknown]
